FAERS Safety Report 9270769 (Version 1)
Quarter: 2013Q2

REPORT INFORMATION
  Report Type: Spontaneous
  Country: FR (occurrence: FR)
  Receive Date: 20130504
  Receipt Date: 20130504
  Transmission Date: 20140414
  Serious: Yes (Hospitalization)
  Sender: FDA-Public Use
  Company Number: FR-MYLANLABS-2013S1009275

PATIENT
  Age: 28 Year
  Sex: Female

DRUGS (8)
  1. BACLOFEN 10 MG TABLETS [Suspect]
     Indication: INTENTIONAL OVERDOSE
     Dosage: DF = 10MG; PRESUMED INGESTED DOSE = 1G
     Route: 048
  2. BACLOFEN 10 MG TABLETS [Suspect]
     Indication: ALCOHOLISM
     Dosage: DF = 10MG; PRESUMED INGESTED DOSE = 1G
     Route: 048
  3. BACLOFEN 10 MG TABLETS [Suspect]
     Indication: INTENTIONAL OVERDOSE
     Route: 065
  4. BACLOFEN 10 MG TABLETS [Suspect]
     Indication: ALCOHOLISM
     Route: 065
  5. OXAZEPAM [Suspect]
     Indication: INTENTIONAL OVERDOSE
     Route: 048
  6. CITALOPRAM [Concomitant]
     Route: 065
  7. PRAZEPAM [Concomitant]
     Route: 065
  8. LORMETAZEPAM [Concomitant]
     Route: 065

REACTIONS (12)
  - Coma [Recovered/Resolved]
  - Myoclonus [Recovering/Resolving]
  - Hypotension [Recovering/Resolving]
  - Bradycardia [Recovering/Resolving]
  - Electrocardiogram QT prolonged [Recovering/Resolving]
  - Pneumonia aspiration [Recovering/Resolving]
  - Abnormal behaviour [Unknown]
  - Persecutory delusion [Unknown]
  - Poisoning deliberate [Recovering/Resolving]
  - Intentional overdose [Recovering/Resolving]
  - Hypotonia [Recovering/Resolving]
  - Areflexia [Unknown]
